FAERS Safety Report 10173740 (Version 1)
Quarter: 2014Q2

REPORT INFORMATION
  Report Type: Spontaneous
  Country: IN (occurrence: None)
  Receive Date: 20140513
  Receipt Date: 20140513
  Transmission Date: 20141212
  Serious: Yes (Life-Threatening, Hospitalization)
  Sender: FDA-Public Use
  Company Number: 2014P1003770

PATIENT
  Age: 32 Year
  Sex: Male

DRUGS (3)
  1. DIGOXIN [Suspect]
  2. PROPRANOLOL [Suspect]
  3. INSULIN [Suspect]
     Indication: TYPE 1 DIABETES MELLITUS

REACTIONS (4)
  - Suicide attempt [None]
  - Overdose [None]
  - Cardioactive drug level increased [None]
  - Toxicity to various agents [None]
